FAERS Safety Report 9082013 (Version 1)
Quarter: 2013Q1

REPORT INFORMATION
  Report Type: Spontaneous
  Country: US (occurrence: US)
  Receive Date: 20130131
  Receipt Date: 20130131
  Transmission Date: 20140127
  Serious: No
  Sender: FDA-Public Use
  Company Number: US-JNJFOC-20130111280

PATIENT
  Age: 89 None
  Sex: Male
  Weight: 63.5 kg

DRUGS (4)
  1. SANDOZ FENTANYL MATRIX TRANSDERMAL SYSTEM [Suspect]
     Indication: CANCER PAIN
     Route: 062
     Dates: start: 20130107
  2. OXYCODONE [Concomitant]
     Indication: BREAKTHROUGH PAIN
     Dosage: 75/325MG EVERY 4 HOURS AS NEEDED
     Route: 048
  3. HYDROCODONE [Concomitant]
     Indication: BREAKTHROUGH PAIN
     Dosage: 75/325MG EVERY 4 HOURS AS NEEDED
     Route: 048
  4. BICALUTAMIDE [Concomitant]
     Indication: PROSTATE CANCER
     Route: 048

REACTIONS (3)
  - Drug dispensing error [Unknown]
  - Expired drug administered [Not Recovered/Not Resolved]
  - Drug ineffective [Not Recovered/Not Resolved]
